FAERS Safety Report 23076738 (Version 1)
Quarter: 2023Q4

REPORT INFORMATION
  Report Type: Spontaneous
  Country: CH (occurrence: CH)
  Receive Date: 20231017
  Receipt Date: 20231017
  Transmission Date: 20240109
  Serious: Yes (Hospitalization, Other)
  Sender: FDA-Public Use
  Company Number: None

PATIENT
  Age: 70 Year
  Sex: Male

DRUGS (11)
  1. OPDIVO [Suspect]
     Active Substance: NIVOLUMAB
     Indication: Metastatic bronchial carcinoma
     Dosage: DOSAGE UNKNOWN. GIVEN 3 TIMES IN TOTAL. FIRST ON 2023-07-13, SECOND ON 2023-08-03.
     Route: 041
     Dates: start: 20230713, end: 20230914
  2. YERVOY [Suspect]
     Active Substance: IPILIMUMAB
     Indication: Metastatic bronchial carcinoma
     Dosage: DOSAGE UNKNOWN. GIVEN 3 TIMES IN TOTAL. FIRST ON 2023-07-13, SECOND ON 2023-08-03.
     Route: 041
     Dates: start: 20230713, end: 20230914
  3. PEMETREXED [Suspect]
     Active Substance: PEMETREXED
     Indication: Metastatic bronchial carcinoma
     Dosage: DOSAGE UNKNOWN. GIVEN ON 2023-07-13, AND 2023-08-24. PROBABLY NOT GIVEN ON 2023-09-14.
     Route: 041
     Dates: start: 20230713, end: 20230914
  4. CARBOPLATIN [Suspect]
     Active Substance: CARBOPLATIN
     Indication: Metastatic bronchial carcinoma
     Dosage: DOSAGE UNKNOWN. GIVEN ON 2023-07-13, AND 2023-08-24. PROBABLY NOT GIVEN ON 2023-09-14.
     Route: 041
     Dates: start: 20230713, end: 20230914
  5. PANTOPRAZOLE SODIUM [Suspect]
     Active Substance: PANTOPRAZOLE SODIUM
     Indication: Product used for unknown indication
     Route: 048
     Dates: start: 202307, end: 20230917
  6. SULFAMETHOXAZOLE\TRIMETHOPRIM [Suspect]
     Active Substance: SULFAMETHOXAZOLE\TRIMETHOPRIM
     Indication: Product used for unknown indication
     Dosage: 3 TIMES PER WEEK (MONDAYS, WEDNESDAYS AND FRIDAYS 1 TABLET CONTAINING 800/160MG) - SULFAMETHOXAZOLE)
     Route: 048
     Dates: start: 202307, end: 20230917
  7. DEXAMETHASONE [Concomitant]
     Active Substance: DEXAMETHASONE
     Indication: Product used for unknown indication
     Dosage: 4MG 0.5-0-0
     Route: 048
     Dates: start: 202307, end: 20230917
  8. PREDNISOLONE [Concomitant]
     Active Substance: PREDNISOLONE
     Indication: Product used for unknown indication
     Dosage: 20MG 0.5-0-0
     Route: 048
     Dates: start: 202307, end: 20230917
  9. FOLIC ACID [Concomitant]
     Active Substance: FOLIC ACID
     Indication: Product used for unknown indication
     Route: 048
     Dates: start: 202307, end: 20230917
  10. TRESIBA [Concomitant]
     Active Substance: INSULIN DEGLUDEC
     Indication: Steroid diabetes
     Dosage: 6 IE IN THE EVENING S.C.
     Route: 058
     Dates: start: 202307
  11. NOVORAPID [Concomitant]
     Active Substance: INSULIN ASPART
     Indication: Steroid diabetes
     Dosage: DOSAGE ACCORDING TO BLOOD SUGAR; AS NECESSARY
     Route: 058
     Dates: start: 202307

REACTIONS (2)
  - Toxic epidermal necrolysis [Not Recovered/Not Resolved]
  - Pancytopenia [Recovering/Resolving]

NARRATIVE: CASE EVENT DATE: 20230915
